FAERS Safety Report 5179407-3 (Version None)
Quarter: 2006Q4

REPORT INFORMATION
  Report Type: 
  Country: None (occurrence: None)
  Receive Date: 20061219
  Receipt Date: 20061211
  Transmission Date: 20070319
  Serious: Yes (Death)
  Sender: FDA-Public Use
  Company Number: IT-BRACCO-BCM-001128

PATIENT
  Sex: Male

DRUGS (2)
  1. MULTIHANCE [Suspect]
     Route: 042
     Dates: start: 20061210, end: 20061210
  2. MULTIHANCE [Suspect]
     Route: 042
     Dates: start: 20061210, end: 20061210

REACTIONS (3)
  - DYSPNOEA [None]
  - NAUSEA [None]
  - PALLOR [None]
